FAERS Safety Report 6725161-0 (Version None)
Quarter: 2010Q2

REPORT INFORMATION
  Report Type: 
  Country: None (occurrence: None)
  Receive Date: 20100513
  Receipt Date: 20100513
  Transmission Date: 20101027
  Serious: Yes (Other)
  Sender: FDA-Public Use
  Company Number: None

PATIENT
  Age: 60 Year
  Sex: Female
  Weight: 92.7 kg

DRUGS (2)
  1. LEVAQUIN [Suspect]
     Indication: PNEUMONIA
     Dosage: 1 1 PER DAY ORAL
     Route: 048
     Dates: start: 20100315, end: 20100324
  2. LEVAQUIN [Suspect]
     Indication: PROPHYLAXIS
     Dosage: 1 1 PER DAY ORAL
     Route: 048
     Dates: start: 20100315, end: 20100324

REACTIONS (6)
  - ANXIETY [None]
  - BACK PAIN [None]
  - MUSCLE STRAIN [None]
  - PAIN IN EXTREMITY [None]
  - PALPITATIONS [None]
  - RESPIRATORY DISORDER [None]
